FAERS Safety Report 6118179-2 (Version None)
Quarter: 2009Q1

REPORT INFORMATION
  Report Type: 
  Country: None (occurrence: None)
  Receive Date: 20090314
  Receipt Date: 20090220
  Transmission Date: 20090719
  Serious: No
  Sender: FDA-Public Use
  Company Number: US-ABBOTT-09P-163-0502414-00

PATIENT
  Sex: Female
  Weight: 54.48 kg

DRUGS (20)
  1. HUMIRA [Suspect]
     Indication: RHEUMATOID ARTHRITIS
     Dates: start: 20070101
  2. HUMIRA [Suspect]
     Indication: SYSTEMIC LUPUS ERYTHEMATOSUS
  3. HUMIRA [Suspect]
     Indication: OSTEOARTHRITIS
  4. CARAFATE [Concomitant]
     Indication: ULCER
  5. LIDODERM [Concomitant]
     Indication: BACK PAIN
     Dosage: PATCH
  6. LIDODERM [Concomitant]
     Indication: INTERVERTEBRAL DISC PROTRUSION
  7. LORTAB [Concomitant]
     Indication: ARTHRALGIA
  8. CYMBALTA [Concomitant]
     Indication: DEPRESSION
  9. PLAVIX [Concomitant]
     Indication: THROMBOSIS
  10. PLAQUENIL [Concomitant]
     Indication: OSTEOARTHRITIS
  11. PLAQUENIL [Concomitant]
     Indication: RHEUMATOID ARTHRITIS
  12. LEVOTHYROXINE SODIUM [Concomitant]
     Indication: HYPOTHYROIDISM
  13. DEPAKOTE [Concomitant]
     Indication: MIGRAINE
  14. FOSAMAX [Concomitant]
     Indication: OSTEOPOROSIS
  15. WELLBUTRIN [Concomitant]
     Indication: DEPRESSION
  16. CLONAZEPAM [Concomitant]
     Indication: DYSPHEMIA
  17. CLONAZEPAM [Concomitant]
     Indication: TREMOR
  18. CALCIUM +VIT D [Concomitant]
     Indication: OSTEOPOROSIS
  19. MULTI-VITAMIN [Concomitant]
     Indication: DRUG USE FOR UNKNOWN INDICATION
  20. VITAMIN B-12 [Concomitant]
     Indication: ANAEMIA

REACTIONS (7)
  - ABDOMINAL PAIN [None]
  - ASTHENIA [None]
  - DIARRHOEA [None]
  - GASTROINTESTINAL INFECTION [None]
  - HYPOPHAGIA [None]
  - MALAISE [None]
  - POLYP [None]
